FAERS Safety Report 23253148 (Version 2)
Quarter: 2024Q1

REPORT INFORMATION
  Report Type: Spontaneous
  Country: DE (occurrence: DE)
  Receive Date: 20231202
  Receipt Date: 20240225
  Transmission Date: 20240410
  Serious: Yes (Other)
  Sender: FDA-Public Use
  Company Number: DE-CADRBFARM-2023324103

PATIENT
  Age: 30 Year
  Sex: Female
  Weight: 65 kg

DRUGS (2)
  1. FLUCONAZOLE [Suspect]
     Active Substance: FLUCONAZOLE
     Indication: Vulvovaginal mycotic infection
     Dosage: 150 MILLIGRAM ( 150 MG EVERY 3 DAYS FOR 2 WEEKS, THEN ONCE A WEEK)
     Route: 048
     Dates: start: 20231005
  2. FLUCONAZOLE [Suspect]
     Active Substance: FLUCONAZOLE
     Dosage: 150 MILLIGRAM, EVERY WEEK, (150 MG EVERY 3 DAYS FOR 2 WEEKS, THEN ONCE A WEEK; REVENUE PLANNED UNTIL
     Route: 048

REACTIONS (4)
  - Angina pectoris [Recovered/Resolved]
  - Chest discomfort [Recovered/Resolved]
  - Chest pain [Recovered/Resolved]
  - Pain [Recovered/Resolved]

NARRATIVE: CASE EVENT DATE: 20231006
